FAERS Safety Report 26175140 (Version 1)
Quarter: 2025Q4

REPORT INFORMATION
  Report Type: Report from Study
  Country: US (occurrence: US)
  Receive Date: 20251218
  Receipt Date: 20251218
  Transmission Date: 20260118
  Serious: Yes (Other)
  Sender: OTSUKA
  Company Number: US-MMM-Otsuka-OWY3RZ9C

PATIENT
  Sex: Male

DRUGS (2)
  1. TOLVAPTAN [Suspect]
     Active Substance: TOLVAPTAN
     Indication: Congenital cystic kidney disease
     Dosage: 0.5 DF, QD [45MG HALF TABLET (22.5MG) IN THE MORNING]
     Route: 065
     Dates: start: 20250828, end: 202512
  2. TOLVAPTAN [Suspect]
     Active Substance: TOLVAPTAN
     Dosage: 0.5 DF, QD [15MG HALF TABLET (7.5MG) 8 H LATER]
     Route: 065
     Dates: start: 20250828, end: 202512

REACTIONS (2)
  - Foot operation [Not Recovered/Not Resolved]
  - Off label use [Unknown]
